FAERS Safety Report 8491892-8 (Version None)
Quarter: 2012Q3

REPORT INFORMATION
  Report Type: 
  Country: None (occurrence: None)
  Receive Date: 20120706
  Receipt Date: 20111101
  Transmission Date: 20120928
  Serious: No
  Sender: FDA-Public Use
  Company Number: US-GLAXOSMITHKLINE-A0951549A

PATIENT
  Age: 74 Year
  Sex: Female

DRUGS (8)
  1. BLOOD PRESSURE MEDICATION [Concomitant]
  2. METOPROLOL [Concomitant]
  3. VITAMIN [Concomitant]
  4. SYNTHROID [Concomitant]
  5. MIGRAINE MEDICATION [Concomitant]
  6. SIMVASTATIN [Concomitant]
  7. VITAMIN TAB [Concomitant]
  8. FLOVENT [Suspect]
     Indication: ASTHMA
     Dosage: 2PUFF TWICE PER DAY
     Route: 055
     Dates: start: 20111025

REACTIONS (3)
  - PRODUCT QUALITY ISSUE [None]
  - DYSPHONIA [None]
  - COUGH [None]
